FAERS Safety Report 5168317-3 (Version None)
Quarter: 2006Q4

REPORT INFORMATION
  Report Type: 
  Country: None (occurrence: None)
  Receive Date: 20061208
  Receipt Date: 20061116
  Transmission Date: 20070319
  Serious: Yes (Other)
  Sender: FDA-Public Use
  Company Number: CN-ROCHE-471593

PATIENT
  Sex: Male
  Weight: 14 kg

DRUGS (2)
  1. ROCEPHIN [Suspect]
     Route: 042
     Dates: start: 20061115, end: 20061115
  2. VITAMIN K1 [Suspect]
     Indication: DRUG USE FOR UNKNOWN INDICATION
     Route: 065
     Dates: start: 20061115

REACTIONS (1)
  - ANAPHYLACTIC SHOCK [None]
